FAERS Safety Report 13150958 (Version 1)
Quarter: 2017Q1

REPORT INFORMATION
  Report Type: Spontaneous
  Country: US (occurrence: US)
  Receive Date: 20170125
  Receipt Date: 20170125
  Transmission Date: 20170428
  Serious: Yes (Other)
  Sender: FDA-Public Use
  Company Number: None

PATIENT
  Age: 52 Year
  Sex: Female
  Weight: 84.44 kg

DRUGS (1)
  1. GABAPENTIN 400MG 2CAP TID [Suspect]
     Active Substance: GABAPENTIN
     Indication: DYSKINESIA OESOPHAGEAL
     Route: 048
     Dates: start: 201512

REACTIONS (2)
  - Product substitution issue [None]
  - Dysphagia [None]

NARRATIVE: CASE EVENT DATE: 201512
